FAERS Safety Report 9429169 (Version 1)
Quarter: 2013Q3

REPORT INFORMATION
  Report Type: Spontaneous
  Country: US (occurrence: US)
  Receive Date: 20130730
  Receipt Date: 20130730
  Transmission Date: 20140515
  Serious: No
  Sender: FDA-Public Use
  Company Number: US-009507513-1307NZL006790

PATIENT
  Sex: 0

DRUGS (2)
  1. SAPHRIS [Suspect]
     Dosage: 5 MG, UNK
  2. SAPHRIS [Suspect]
     Dosage: 10 MG, UNK

REACTIONS (10)
  - Feeling abnormal [Recovered/Resolved]
  - Sensory level [Recovered/Resolved]
  - Dysgeusia [Recovered/Resolved]
  - Hypoaesthesia oral [Recovered/Resolved]
  - Sedation [Recovered/Resolved]
  - Somnolence [Recovered/Resolved]
  - Weight increased [Recovering/Resolving]
  - Anxiety [Recovering/Resolving]
  - Therapeutic response decreased [Unknown]
  - Akathisia [Recovered/Resolved]
